FAERS Safety Report 8252259-0 (Version None)
Quarter: 2012Q2

REPORT INFORMATION
  Report Type: 
  Country: None (occurrence: None)
  Receive Date: 20120402
  Receipt Date: 20110928
  Transmission Date: 20120825
  Serious: No
  Sender: FDA-Public Use
  Company Number: US-ABBOTT-11P-163-0858906-00

PATIENT
  Age: 78 Year
  Sex: Male

DRUGS (10)
  1. ANDROGEL [Suspect]
     Dosage: 2 PACKETS
     Dates: start: 20110928
  2. FLOMAX [Concomitant]
     Indication: URINARY INCONTINENCE
  3. UNKNOWN CALCIUM CHANNEL BLOCKER [Concomitant]
     Indication: ATRIAL FIBRILLATION
  4. ANDROGEL [Suspect]
     Indication: BLOOD TESTOSTERONE DECREASED
     Dosage: 1 PACKET
     Dates: start: 20110801, end: 20110928
  5. PREDNISONE TAB [Concomitant]
     Indication: ARTHRALGIA
  6. VESICARE [Concomitant]
     Indication: URINARY INCONTINENCE
  7. UNKNOWN BETA BLOCKER [Concomitant]
     Indication: ATRIAL FIBRILLATION
  8. COUMADIN [Concomitant]
     Indication: PRODUCT USED FOR UNKNOWN INDICATION
  9. BENADRYL [Concomitant]
     Indication: INSOMNIA
  10. SYNTHROID [Concomitant]
     Indication: HYPOTHYROIDISM
     Dosage: LOW DOSE

REACTIONS (2)
  - HAIR DISORDER [None]
  - BLOOD TESTOSTERONE DECREASED [None]
